FAERS Safety Report 13368609 (Version 3)
Quarter: 2017Q2

REPORT INFORMATION
  Report Type: Spontaneous
  Country: US (occurrence: US)
  Receive Date: 20170324
  Receipt Date: 20170517
  Transmission Date: 20170830
  Serious: No
  Sender: FDA-Public Use
  Company Number: US-PFIZER INC-2017125794

PATIENT
  Age: 72 Year
  Sex: Female

DRUGS (3)
  1. IBRANCE [Suspect]
     Active Substance: PALBOCICLIB
     Dosage: 100 MG, CYCLIC (1CAP PO QOD FOR 21 DAYS ON AND 7 DAYS OFF)
     Route: 048
     Dates: start: 20170317
  2. FASLODEX [Suspect]
     Active Substance: FULVESTRANT
     Dosage: UNK
  3. IBRANCE [Suspect]
     Active Substance: PALBOCICLIB
     Indication: BREAST CANCER FEMALE
     Dosage: 100 MG, CYCLIC (21 DAYS ON/7 DAYS OFF)

REACTIONS (3)
  - Fatigue [Not Recovered/Not Resolved]
  - Feeling abnormal [Unknown]
  - Diarrhoea [Unknown]
